FAERS Safety Report 16551414 (Version 7)
Quarter: 2019Q3

REPORT INFORMATION
  Report Type: Report from Study
  Country: JP (occurrence: JP)
  Receive Date: 20190710
  Receipt Date: 20190912
  Transmission Date: 20191004
  Serious: Yes (Hospitalization)
  Sender: FDA-Public Use
  Company Number: JP-EISAI MEDICAL RESEARCH-EC-2019-058813

PATIENT
  Age: 64 Year
  Sex: Female
  Weight: 71 kg

DRUGS (11)
  1. LENVATINIB [Suspect]
     Active Substance: LENVATINIB
     Route: 048
     Dates: start: 20190719, end: 20190726
  2. PRAVASTATIN SODIUM. [Concomitant]
     Active Substance: PRAVASTATIN SODIUM
  3. LENVATINIB [Suspect]
     Active Substance: LENVATINIB
     Indication: RENAL CELL CARCINOMA
     Route: 048
     Dates: start: 20190620, end: 20190705
  4. LENVATINIB [Suspect]
     Active Substance: LENVATINIB
     Route: 048
     Dates: start: 20190802, end: 20190816
  5. FLUITRAN [Concomitant]
     Active Substance: TRICHLORMETHIAZIDE
  6. AMLODIPINE BESILATE [Concomitant]
     Active Substance: AMLODIPINE BESYLATE
  7. CLOPIDOGREL SULFATE [Concomitant]
     Active Substance: CLOPIDOGREL BISULFATE
  8. LENVATINIB [Suspect]
     Active Substance: LENVATINIB
     Route: 048
     Dates: start: 20190716, end: 20190716
  9. FAMOTIDINE. [Concomitant]
     Active Substance: FAMOTIDINE
  10. PEMBROLIZUMAB. [Suspect]
     Active Substance: PEMBROLIZUMAB
     Indication: RENAL CELL CARCINOMA
     Route: 041
     Dates: start: 20190621, end: 20190823
  11. AZILVA [Concomitant]
     Active Substance: AZILSARTAN KAMEDOXOMIL

REACTIONS (2)
  - Proteinuria [Recovering/Resolving]
  - Tumour haemorrhage [Recovering/Resolving]

NARRATIVE: CASE EVENT DATE: 20190705
